FAERS Safety Report 9235267 (Version 1)
Quarter: 2013Q2

REPORT INFORMATION
  Report Type: Spontaneous
  Country: US (occurrence: US)
  Receive Date: 20130417
  Receipt Date: 20130417
  Transmission Date: 20140414
  Serious: No
  Sender: FDA-Public Use
  Company Number: US-BIOGENIDEC-2013BI034143

PATIENT
  Sex: Female

DRUGS (1)
  1. AVONEX [Suspect]
     Indication: MULTIPLE SCLEROSIS
     Route: 030
     Dates: start: 20130321

REACTIONS (5)
  - Tremor [Recovered/Resolved]
  - Central nervous system lesion [Unknown]
  - Multiple sclerosis [Unknown]
  - Chills [Recovered/Resolved]
  - Malaise [Recovered/Resolved]
